FAERS Safety Report 9184442 (Version 1)
Quarter: 2012Q4

REPORT INFORMATION
  Report Type: 
  Country: US (occurrence: US)
  Receive Date: 20121101
  Receipt Date: 20121101
  Transmission Date: 20130627
  Serious: No
  Sender: FDA-Public Use
  Company Number: US-PFIZER INC-2012270323

PATIENT
  Age: 2 Year
  Sex: Female

DRUGS (1)
  1. ADVIL [Suspect]
     Dosage: UNK
     Dates: start: 20121028

REACTIONS (5)
  - Accidental exposure to product by child [Unknown]
  - Dizziness [Unknown]
  - Somnolence [Unknown]
  - Panic reaction [Unknown]
  - Fatigue [Unknown]
